FAERS Safety Report 4938482-9 (Version None)
Quarter: 2006Q1

REPORT INFORMATION
  Report Type: 
  Country: None (occurrence: None)
  Receive Date: 20060302
  Receipt Date: 20060210
  Transmission Date: 20060701
  Serious: Yes (Other)
  Sender: FDA-Public Use
  Company Number: DE200602002693

PATIENT
  Age: 14 Year
  Sex: Female
  Weight: 39 kg

DRUGS (6)
  1. HUMATROPE [Suspect]
     Indication: GROWTH RETARDATION
     Dosage: SEE IMAGE
     Route: 058
     Dates: start: 20030709, end: 20031101
  2. HUMATROPE [Suspect]
     Indication: GROWTH RETARDATION
     Dosage: SEE IMAGE
     Route: 058
     Dates: start: 20031101, end: 20040501
  3. HUMATROPE [Suspect]
     Indication: GROWTH RETARDATION
     Dosage: SEE IMAGE
     Route: 058
     Dates: start: 20040501, end: 20050831
  4. HUMATROPE [Suspect]
     Indication: GROWTH RETARDATION
     Dosage: SEE IMAGE
     Route: 058
     Dates: start: 20050831
  5. HUMATROPEN (HUMATROPEN TYPE) PEN, REUSABLE [Concomitant]
  6. PROGYNOVA /NET/ (ESTRADIOL VALERATE) [Concomitant]

REACTIONS (7)
  - ARTHRITIS [None]
  - HEADACHE [None]
  - LEUKOPENIA [None]
  - OEDEMA PERIPHERAL [None]
  - PERIARTHRITIS [None]
  - RASH PAPULAR [None]
  - VASCULITIS [None]
